FAERS Safety Report 7010860-6 (Version None)
Quarter: 2010Q3

REPORT INFORMATION
  Report Type: 
  Country: None (occurrence: None)
  Receive Date: 20100923
  Receipt Date: 20100923
  Transmission Date: 20110219
  Serious: Yes (Life-Threatening)
  Sender: FDA-Public Use
  Company Number: None

PATIENT
  Age: 47 Year
  Sex: Male
  Weight: 90.7194 kg

DRUGS (1)
  1. OXYCONTIN [Suspect]
     Indication: PROCEDURAL PAIN
     Dosage: 80MG THREE TIMES A DAY PO, EVERYDAY
     Route: 048
     Dates: start: 20100902, end: 20100920

REACTIONS (7)
  - DRUG INEFFECTIVE [None]
  - GASTROINTESTINAL DISORDER [None]
  - MALAISE [None]
  - PAIN [None]
  - PRODUCT FORMULATION ISSUE [None]
  - QUALITY OF LIFE DECREASED [None]
  - UNEVALUABLE EVENT [None]
